FAERS Safety Report 6312000-5 (Version None)
Quarter: 2009Q3

REPORT INFORMATION
  Report Type: 
  Country: None (occurrence: None)
  Receive Date: 20090817
  Receipt Date: 20090324
  Transmission Date: 20100115
  Serious: Yes (Other)
  Sender: FDA-Public Use
  Company Number: US-BRISTOL-MYERS SQUIBB COMPANY-14558779

PATIENT
  Age: 65 Year
  Sex: Female

DRUGS (2)
  1. ESTRACE [Suspect]
     Dosage: REDUCED TO 1MG IN 1991;INCREASED TO 1.5MG IN 1996
  2. PROVERA [Suspect]
     Dosage: REDUCED TO 2.5MG IN 1996

REACTIONS (1)
  - UTERINE LEIOMYOMA [None]
